FAERS Safety Report 24526820 (Version 1)
Quarter: 2024Q4

REPORT INFORMATION
  Report Type: Spontaneous
  Country: FR (occurrence: FR)
  Receive Date: 20241021
  Receipt Date: 20241021
  Transmission Date: 20250115
  Serious: No
  Sender: ROCHE
  Company Number: None

PATIENT
  Age: 69 Year
  Sex: Male
  Weight: 95.0 kg

DRUGS (1)
  1. ZELBORAF [Suspect]
     Active Substance: VEMURAFENIB
     Indication: Histiocytosis
     Dosage: 480MG  2 TIMES PER DAY
     Route: 065
     Dates: start: 20230515, end: 20231120

REACTIONS (1)
  - Hyperlipasaemia [Recovered/Resolved]

NARRATIVE: CASE EVENT DATE: 20231120
